FAERS Safety Report 9190277 (Version 1)
Quarter: 2013Q1

REPORT INFORMATION
  Report Type: Spontaneous
  Country: US (occurrence: None)
  Receive Date: 20130325
  Receipt Date: 20130325
  Transmission Date: 20140127
  Serious: No
  Sender: FDA-Public Use
  Company Number: None

PATIENT
  Sex: Male
  Weight: 107.5 kg

DRUGS (1)
  1. KEPPRA [Suspect]
     Dosage: 1000 MG 2 BID PO?1000 MG 2 TABS BID ?BRAND MEDICALLY NECESSARY?
     Route: 048

REACTIONS (1)
  - Convulsion [None]
